FAERS Safety Report 7207899-4 (Version None)
Quarter: 2010Q4

REPORT INFORMATION
  Report Type: 
  Country: None (occurrence: None)
  Receive Date: 20101221
  Receipt Date: 20101206
  Transmission Date: 20110411
  Serious: Yes (Hospitalization, Other)
  Sender: FDA-Public Use
  Company Number: JPI-P012125

PATIENT
  Age: 36 Year
  Sex: Female
  Weight: 104.3273 kg

DRUGS (12)
  1. XYREM [Suspect]
     Indication: CATAPLEXY
     Dosage: (ORAL) (7.5 GM (3.75 GM, 2 IN 1 D), ORAL) (9 GM (4.5 GM, 2 IN 1 D), ORAL)
     Route: 048
     Dates: end: 20101105
  2. XYREM [Suspect]
     Indication: CATAPLEXY
     Dosage: (ORAL) (7.5 GM (3.75 GM, 2 IN 1 D), ORAL) (9 GM (4.5 GM, 2 IN 1 D), ORAL)
     Route: 048
     Dates: start: 20050908
  3. XYREM [Suspect]
     Indication: CATAPLEXY
     Dosage: (ORAL) (7.5 GM (3.75 GM, 2 IN 1 D), ORAL) (9 GM (4.5 GM, 2 IN 1 D), ORAL)
     Route: 048
     Dates: start: 20101106
  4. IMIPRAMINE [Concomitant]
  5. TOPIRAMATE [Concomitant]
  6. ATENOLOL [Concomitant]
  7. LISINOPRIL [Concomitant]
  8. DIVALPROEX SODIUM [Concomitant]
  9. VENLAFAXINE [Concomitant]
  10. ESOMEPRAZOLE [Concomitant]
  11. METHYLPHENIDATE [Concomitant]
  12. SIMVASTATIN [Concomitant]

REACTIONS (6)
  - BIPOLAR DISORDER [None]
  - DIABETES MELLITUS [None]
  - INTRACRANIAL VENOUS SINUS THROMBOSIS [None]
  - PARANOIA [None]
  - THERAPEUTIC RESPONSE DECREASED [None]
  - THROMBOTIC STROKE [None]
